FAERS Safety Report 7236554-X (Version None)
Quarter: 2011Q1

REPORT INFORMATION
  Report Type: 
  Country: None (occurrence: None)
  Receive Date: 20110120
  Receipt Date: 20110113
  Transmission Date: 20110831
  Serious: Yes (Other)
  Sender: FDA-Public Use
  Company Number: US-US-EMD SERONO, INC.-237033K09USA

PATIENT
  Sex: Female
  Weight: 108 kg

DRUGS (14)
  1. TRICOR [Concomitant]
     Indication: BLOOD CHOLESTEROL INCREASED
  2. METFORMIN [Concomitant]
     Indication: DIABETES MELLITUS
  3. ENALAPRIL [Concomitant]
     Indication: HYPERTENSION
  4. TOPAMAX [Concomitant]
     Indication: PAIN
     Route: 065
  5. HYDRO-APAP [Concomitant]
     Indication: PAIN
     Route: 065
  6. ELAVIL [Concomitant]
     Route: 065
  7. REBIF [Suspect]
     Indication: MULTIPLE SCLEROSIS
     Route: 058
     Dates: start: 20090324, end: 20090501
  8. REBIF [Suspect]
     Route: 058
     Dates: start: 20090622
  9. AMBIEN [Concomitant]
  10. LOVAZA [Concomitant]
     Indication: BLOOD CHOLESTEROL INCREASED
  11. ADVIL [Concomitant]
     Indication: PREMEDICATION
  12. SOMA [Concomitant]
     Indication: PAIN
  13. AMITRIPTYLINE [Concomitant]
     Indication: NEURALGIA
  14. ALLOPURINOL [Concomitant]
     Indication: GOUT

REACTIONS (4)
  - LIVER DISORDER [None]
  - INFLUENZA LIKE ILLNESS [None]
  - LABORATORY TEST ABNORMAL [None]
  - HEPATIC ENZYME INCREASED [None]
